FAERS Safety Report 5274908-1 (Version None)
Quarter: 2007Q1

REPORT INFORMATION
  Report Type: 
  Country: None (occurrence: None)
  Receive Date: 20061208
  Receipt Date: 20060626
  Transmission Date: 20070707
  Serious: Yes (Hospitalization)
  Sender: FDA-Public Use
  Company Number: 2006SE02356

PATIENT
  Age: 55 Year
  Sex: Male

DRUGS (2)
  1. CRESTOR [Suspect]
     Indication: BLOOD CHOLESTEROL
     Dosage: 10 MG DAILY PO
     Route: 048
     Dates: start: 20050201, end: 20050401
  2. CRESTOR [Suspect]
     Indication: BLOOD CHOLESTEROL
     Dosage: 5 MG DAILY PO
     Route: 048
     Dates: start: 20050101, end: 20050701

REACTIONS (2)
  - ARTHRALGIA [None]
  - PANCREATITIS [None]
